FAERS Safety Report 9218125 (Version 1)
Quarter: 2013Q2

REPORT INFORMATION
  Report Type: Report from Study
  Country: FR (occurrence: FR)
  Receive Date: 20130408
  Receipt Date: 20130408
  Transmission Date: 20140414
  Serious: Yes (Death)
  Sender: FDA-Public Use
  Company Number: FR-BAXTER-2013BAX012994

PATIENT
  Sex: 0

DRUGS (4)
  1. ENDOXAN 1000 MG, POUDRE POUR SOLUTION INJECTABLE [Suspect]
     Indication: SYSTEMIC SCLEROSIS
     Dosage: 2X2G/M2
     Route: 065
  2. ENDOXAN 1000 MG, POUDRE POUR SOLUTION INJECTABLE [Suspect]
     Route: 065
  3. G-CSF [Suspect]
     Indication: SYSTEMIC SCLEROSIS
     Route: 065
  4. RBATG [Suspect]
     Indication: SYSTEMIC SCLEROSIS
     Route: 065

REACTIONS (1)
  - Acute respiratory distress syndrome [Fatal]
